FAERS Safety Report 11397784 (Version 2)
Quarter: 2015Q3

REPORT INFORMATION
  Report Type: Spontaneous
  Country: US (occurrence: US)
  Receive Date: 20150819
  Receipt Date: 20150828
  Transmission Date: 20151125
  Serious: Yes (Hospitalization, Disabling, Other)
  Sender: FDA-Public Use
  Company Number: US-009507513-1204USA04177

PATIENT
  Sex: Female

DRUGS (3)
  1. FOSAMAX [Suspect]
     Active Substance: ALENDRONATE SODIUM
     Dosage: 70 MG, QW
     Route: 048
     Dates: end: 20100401
  2. FOSAMAX [Suspect]
     Active Substance: ALENDRONATE SODIUM
     Indication: BONE DENSITY DECREASED
     Dosage: 70 MG, UNK
     Route: 048
     Dates: start: 20060717, end: 20071226
  3. ALENDRONATE SODIUM. [Suspect]
     Active Substance: ALENDRONATE SODIUM
     Indication: BONE DENSITY DECREASED
     Dosage: 70 MG, QW
     Route: 048
     Dates: start: 20080819, end: 201004

REACTIONS (29)
  - Pain in extremity [Unknown]
  - Anxiety [Unknown]
  - Hypertension [Unknown]
  - Hypercholesterolaemia [Unknown]
  - Haemorrhagic anaemia [Unknown]
  - Dermatitis allergic [Unknown]
  - Fracture nonunion [Unknown]
  - Osteoporosis [Unknown]
  - Thrombocytopenia [Unknown]
  - Pelvic fracture [Unknown]
  - Nephrolithiasis [Unknown]
  - Bone disorder [Unknown]
  - Cholecystectomy [Unknown]
  - Femur fracture [Unknown]
  - Chronic kidney disease [Unknown]
  - Drug hypersensitivity [Unknown]
  - Breast mass [Unknown]
  - Extrasystoles [Recovered/Resolved]
  - Nasopharyngitis [Recovered/Resolved]
  - Removal of internal fixation [Unknown]
  - Depression [Unknown]
  - Coronary artery disease [Unknown]
  - Cataract [Unknown]
  - Gastrooesophageal reflux disease [Unknown]
  - Temporomandibular joint syndrome [Unknown]
  - Cardiac murmur [Unknown]
  - Hyperlipidaemia [Unknown]
  - Rheumatoid arthritis [Unknown]
  - Hypothyroidism [Unknown]

NARRATIVE: CASE EVENT DATE: 20080606
